FAERS Safety Report 8795426 (Version 2)
Quarter: 2015Q1

REPORT INFORMATION
  Report Type: Report from Study
  Country: US (occurrence: US)
  Receive Date: 20120917
  Receipt Date: 20150220
  Transmission Date: 20150721
  Serious: Yes (Death)
  Sender: FDA-Public Use
  Company Number: US-ROCHE-1129301

PATIENT
  Sex: Female

DRUGS (15)
  1. ALTEPLASE [Concomitant]
     Active Substance: ALTEPLASE
     Route: 042
  2. ZOMETA [Concomitant]
     Active Substance: ZOLEDRONIC ACID
  3. DIAZEPAM. [Concomitant]
     Active Substance: DIAZEPAM
     Dosage: ONCE FOR EVERY 6-8 HOURS. PRN
     Route: 048
  4. ALOXI [Concomitant]
     Active Substance: PALONOSETRON HYDROCHLORIDE
     Route: 042
  5. DIPHENHYDRAMINE [Concomitant]
     Active Substance: DIPHENHYDRAMINE
     Route: 042
  6. ACETAMINOPHEN. [Concomitant]
     Active Substance: ACETAMINOPHEN
     Route: 048
  7. OXYCONTIN [Concomitant]
     Active Substance: OXYCODONE HYDROCHLORIDE
     Route: 048
  8. OXYCODONE [Concomitant]
     Active Substance: OXYCODONE
     Route: 048
  9. AVASTIN [Suspect]
     Active Substance: BEVACIZUMAB
     Indication: BREAST CANCER
     Route: 042
  10. NEUPOGEN [Concomitant]
     Active Substance: FILGRASTIM
     Dosage: AS DIRESCTED
     Route: 058
  11. DEXAMETHASONE SODIUM PHOSPHATE. [Concomitant]
     Active Substance: DEXAMETHASONE SODIUM PHOSPHATE
     Dosage: AS DIRECTED
     Route: 042
  12. MEGACE [Concomitant]
     Active Substance: MEGESTROL ACETATE
  13. VINORELBINE [Concomitant]
     Active Substance: VINORELBINE\VINORELBINE TARTRATE
     Route: 042
  14. ZOLEDRONATE [Concomitant]
     Active Substance: ZOLEDRONIC ACID
     Route: 042
  15. DARBEPOETIN ALFA [Concomitant]
     Active Substance: DARBEPOETIN ALFA
     Route: 065

REACTIONS (15)
  - Anxiety [Unknown]
  - Neutrophil count decreased [Unknown]
  - Dyspnoea [Unknown]
  - Fatigue [Unknown]
  - Muscle strain [Unknown]
  - Chest pain [Unknown]
  - Dysphagia [Unknown]
  - Hypophagia [Unknown]
  - Death [Fatal]
  - Decreased appetite [Unknown]
  - Glossodynia [Unknown]
  - Oropharyngeal pain [Unknown]
  - Urine ketone body [Unknown]
  - Asthenia [Unknown]
  - Musculoskeletal chest pain [Unknown]
